FAERS Safety Report 6338152-9 (Version None)
Quarter: 2009Q3

REPORT INFORMATION
  Report Type: 
  Country: None (occurrence: None)
  Receive Date: 20090902
  Receipt Date: 20090828
  Transmission Date: 20100115
  Serious: No
  Sender: FDA-Public Use
  Company Number: US-B.I. PHARMACEUTICALS,INC./RIDGEFIELD-2009-BP-08340BP

PATIENT
  Sex: Female

DRUGS (13)
  1. SPIRIVA [Suspect]
     Indication: MULTIPLE ALLERGIES
     Dosage: 18 MCG
     Route: 055
     Dates: start: 20080701, end: 20090701
  2. SPIRIVA [Suspect]
     Indication: NASAL CONGESTION
     Dosage: 36 MCG
     Route: 055
     Dates: start: 20090708
  3. SPIRIVA [Suspect]
     Indication: DYSPNOEA
  4. NASACORT [Concomitant]
     Indication: MULTIPLE ALLERGIES
     Dates: start: 20080701
  5. SYMBICORT [Concomitant]
     Indication: MULTIPLE ALLERGIES
     Dates: start: 20080701
  6. SYNTHROID [Concomitant]
     Indication: HYPOTHYROIDISM
     Dosage: 0.1 MG
     Route: 048
  7. TIMOLOL [Concomitant]
     Indication: GLAUCOMA
     Dates: start: 20000101
  8. FEXOFENADINE [Concomitant]
     Indication: MULTIPLE ALLERGIES
     Dosage: 180 MG
     Route: 048
  9. ASPIRIN [Concomitant]
     Indication: HYPERTENSION
  10. ASPIRIN [Concomitant]
     Indication: BLOOD DISORDER
  11. EXFORGE [Concomitant]
     Indication: BLOOD PRESSURE
  12. ASTELIN [Concomitant]
  13. PROAIR HFA [Concomitant]

REACTIONS (4)
  - COUGH [None]
  - DRY EYE [None]
  - EYE PAIN [None]
  - NASAL CONGESTION [None]
